FAERS Safety Report 18905269 (Version 1)
Quarter: 2021Q1

REPORT INFORMATION
  Report Type: Spontaneous
  Country: GR (occurrence: GR)
  Receive Date: 20210217
  Receipt Date: 20210217
  Transmission Date: 20210420
  Serious: Yes (Death, Other)
  Sender: FDA-Public Use
  Company Number: GR-JNJFOC-A-CH2020-202979

PATIENT
  Age: 79 Year
  Sex: Female

DRUGS (21)
  1. TADALAFIL. [Concomitant]
     Active Substance: TADALAFIL
     Indication: PULMONARY ARTERIAL HYPERTENSION
     Dosage: 40 MG, QD
     Route: 065
     Dates: start: 201612
  2. SILDENAFIL. [Concomitant]
     Active Substance: SILDENAFIL
     Indication: CONNECTIVE TISSUE DISORDER
  3. UPTRAVI [Concomitant]
     Active Substance: SELEXIPAG
     Indication: PULMONARY ARTERIAL HYPERTENSION
     Dosage: 1600 MCG, BID
     Route: 048
     Dates: start: 201707
  4. SILDENAFIL. [Concomitant]
     Active Substance: SILDENAFIL
     Indication: PULMONARY ARTERIAL HYPERTENSION
     Dosage: 20 MG, TID
     Route: 065
  5. PREDNISOLONE. [Concomitant]
     Active Substance: PREDNISOLONE
     Indication: PRODUCT USED FOR UNKNOWN INDICATION
  6. EPOPROSTENOL SODIUM. [Suspect]
     Active Substance: EPOPROSTENOL SODIUM
     Indication: PULMONARY ARTERIAL HYPERTENSION
     Dosage: 0.028 UG/KG, CONTINUING
     Route: 042
  7. REMODULIN [Suspect]
     Active Substance: TREPROSTINIL
     Indication: PULMONARY ARTERIAL HYPERTENSION
     Dosage: 0.037 UG/KG,
     Route: 058
  8. OPSUMIT [Concomitant]
     Active Substance: MACITENTAN
     Indication: PULMONARY ARTERIAL HYPERTENSION
     Dosage: 10 MG, QD
     Route: 048
     Dates: start: 201609
  9. OPSUMIT [Concomitant]
     Active Substance: MACITENTAN
     Indication: CONNECTIVE TISSUE DISORDER
     Dosage: 10 MG, QD
     Route: 048
     Dates: start: 201702
  10. AMBRISENTAN [Concomitant]
     Active Substance: AMBRISENTAN
     Indication: CONNECTIVE TISSUE DISORDER
  11. REMODULIN [Suspect]
     Active Substance: TREPROSTINIL
     Dosage: 0.1 UG/KG,
     Route: 058
  12. TADALAFIL. [Concomitant]
     Active Substance: TADALAFIL
     Indication: CONNECTIVE TISSUE DISORDER
     Dosage: 40 MG, QD
     Route: 065
     Dates: start: 201703
  13. SPIRONOLACTONE. [Concomitant]
     Active Substance: SPIRONOLACTONE
     Dosage: 25 MG
     Route: 065
  14. MYCOPHENOLATE MOFETIL. [Concomitant]
     Active Substance: MYCOPHENOLATE MOFETIL
     Indication: PRODUCT USED FOR UNKNOWN INDICATION
     Route: 065
  15. EPOPROSTENOL SODIUM. [Suspect]
     Active Substance: EPOPROSTENOL SODIUM
     Indication: CONNECTIVE TISSUE DISORDER
     Dosage: 0.042 UG/KG, CONTINUING
     Route: 042
     Dates: start: 20180307
  16. FUROSEMIDE. [Concomitant]
     Active Substance: FUROSEMIDE
     Dosage: 200?500 MG
     Route: 065
  17. AMBRISENTAN [Concomitant]
     Active Substance: AMBRISENTAN
     Indication: PULMONARY ARTERIAL HYPERTENSION
     Dosage: 10 MG, QD
     Route: 065
  18. EPOPROSTENOL SODIUM. [Suspect]
     Active Substance: EPOPROSTENOL SODIUM
     Indication: PULMONARY ARTERIAL HYPERTENSION
     Dosage: 0.030 UG/KG, CONTINUING
     Route: 042
     Dates: start: 20150910
  19. EPOPROSTENOL SODIUM. [Suspect]
     Active Substance: EPOPROSTENOL SODIUM
     Dosage: 0.09 UG/KG, CONTINUING
     Route: 042
  20. REMODULIN [Suspect]
     Active Substance: TREPROSTINIL
     Indication: CONNECTIVE TISSUE DISORDER
     Dosage: 0.039 UG/KG,
     Route: 058
  21. REMODULIN [Suspect]
     Active Substance: TREPROSTINIL
     Dosage: 0.050 UG/KG,
     Route: 058
     Dates: end: 20180307

REACTIONS (12)
  - Flushing [Recovered/Resolved]
  - Pain in extremity [Unknown]
  - Pulmonary arterial hypertension [Unknown]
  - Diarrhoea [Recovered/Resolved]
  - Pain in jaw [Recovered/Resolved]
  - Right ventricular failure [Fatal]
  - Therapy partial responder [Unknown]
  - Autoimmune thyroiditis [Unknown]
  - Condition aggravated [Unknown]
  - Lung transplant [Unknown]
  - Headache [Unknown]
  - Abdominal pain [Unknown]

NARRATIVE: CASE EVENT DATE: 201612
